FAERS Safety Report 18593242 (Version 2)
Quarter: 2021Q1

REPORT INFORMATION
  Report Type: Spontaneous
  Country: JP (occurrence: JP)
  Receive Date: 20201208
  Receipt Date: 20210127
  Transmission Date: 20210419
  Serious: Yes (Other)
  Sender: FDA-Public Use
  Company Number: JP-ELI_LILLY_AND_COMPANY-JP202012001259

PATIENT
  Age: 55 Year
  Sex: Female

DRUGS (1)
  1. DULOXETINE HYDROCHLORIDE. [Suspect]
     Active Substance: DULOXETINE HYDROCHLORIDE
     Indication: MIXED ANXIETY AND DEPRESSIVE DISORDER
     Dosage: 40 MG, EACH EVENING
     Route: 048
     Dates: start: 20200916

REACTIONS (6)
  - Insomnia [Recovered/Resolved]
  - Appendicitis [Unknown]
  - Agitation [Recovered/Resolved]
  - Formication [Recovered/Resolved]
  - Tension [Recovered/Resolved]
  - Dizziness [Recovered/Resolved]

NARRATIVE: CASE EVENT DATE: 20201126
